FAERS Safety Report 4663798-3 (Version None)
Quarter: 2005Q2

REPORT INFORMATION
  Report Type: 
  Country: None (occurrence: None)
  Receive Date: 20050511
  Receipt Date: 20050323
  Transmission Date: 20051028
  Serious: Yes (Other)
  Sender: FDA-Public Use
  Company Number: 399854

PATIENT
  Age: 51 Year
  Sex: Male

DRUGS (2)
  1. PEGASYS [Suspect]
     Indication: HEPATITIS C VIRUS
     Dosage: 180 MCG, 1 PER 1 WEEK, SUBCUTANEOUS
     Route: 058
     Dates: start: 20041011
  2. RIBASPHERE [Suspect]
     Indication: HEPATITIS C VIRUS
     Dosage: 1600 MG, DAILY, ORAL
     Route: 048
     Dates: start: 20041011

REACTIONS (8)
  - COUGH [None]
  - DYSPNOEA EXERTIONAL [None]
  - FATIGUE [None]
  - HYPERTENSION [None]
  - INSOMNIA [None]
  - LYMPHADENOPATHY [None]
  - PAIN [None]
  - SARCOIDOSIS [None]
